FAERS Safety Report 19734120 (Version 4)
Quarter: 2022Q1

REPORT INFORMATION
  Report Type: Spontaneous
  Country: US (occurrence: US)
  Receive Date: 20210823
  Receipt Date: 20220208
  Transmission Date: 20220423
  Serious: Yes (Other)
  Sender: FDA-Public Use
  Company Number: US-GLAXOSMITHKLINE-US2021AMR172736

PATIENT
  Age: 80 Year
  Sex: Female

DRUGS (3)
  1. ZEJULA [Suspect]
     Active Substance: NIRAPARIB
     Indication: Ovarian cancer
     Dosage: 200 MG, QD (QPM)
     Dates: start: 20190304
  2. ZEJULA [Suspect]
     Active Substance: NIRAPARIB
     Dosage: 200MG, QD, PM WITHOUT FOOD
     Route: 048
     Dates: start: 201903
  3. ZEJULA [Suspect]
     Active Substance: NIRAPARIB
     Dosage: 200 MG, QD
     Route: 048

REACTIONS (6)
  - Computerised tomogram abnormal [Unknown]
  - Carbohydrate antigen 125 increased [Unknown]
  - Radiotherapy [Recovered/Resolved]
  - Asthenia [Unknown]
  - Osteoporosis [Unknown]
  - Off label use [Unknown]

NARRATIVE: CASE EVENT DATE: 20190612
